FAERS Safety Report 15107243 (Version 10)
Quarter: 2018Q3

REPORT INFORMATION
  Report Type: Report from Study
  Country: US (occurrence: US)
  Receive Date: 20180704
  Receipt Date: 20180912
  Transmission Date: 20181010
  Serious: Yes (Hospitalization, Other)
  Sender: FDA-Public Use
  Company Number: US-GILEAD-2018-0348343

PATIENT
  Age: 10 Year
  Sex: Male
  Weight: 34.2 kg

DRUGS (3)
  1. AMBRISENTAN [Suspect]
     Active Substance: AMBRISENTAN
     Indication: PULMONARY ARTERIAL HYPERTENSION
     Dosage: 5 MG, QD
     Route: 065
     Dates: start: 20170109
  2. REMODULIN [Concomitant]
     Active Substance: TREPROSTINIL
  3. ADCIRCA [Concomitant]
     Active Substance: TADALAFIL

REACTIONS (13)
  - Infusion site infection [Recovered/Resolved]
  - Infusion site reaction [Unknown]
  - Infusion site pain [Unknown]
  - Device allergy [Recovered/Resolved]
  - Off label use [Not Recovered/Not Resolved]
  - Infusion site erythema [Recovered/Resolved]
  - Staphylococcal skin infection [Recovered/Resolved]
  - Injection site hypersensitivity [Not Recovered/Not Resolved]
  - Skin disorder [Unknown]
  - Abdominal discomfort [Unknown]
  - Infusion site urticaria [Recovered/Resolved]
  - Cellulitis [Unknown]
  - Malabsorption from administration site [Unknown]

NARRATIVE: CASE EVENT DATE: 20170109
